FAERS Safety Report 26071841 (Version 1)
Quarter: 2025Q4

REPORT INFORMATION
  Report Type: Spontaneous
  Country: US (occurrence: None)
  Receive Date: 20251120
  Receipt Date: 20251120
  Transmission Date: 20260117
  Serious: Yes (Hospitalization)
  Sender: FDA-CTU
  Company Number: None

PATIENT
  Age: 15 Year
  Sex: Male
  Weight: 39.7 kg

DRUGS (2)
  1. ASPARLAS [Suspect]
     Active Substance: CALASPARGASE PEGOL-MKNL
     Indication: Leukaemia
     Dosage: OTHER FREQUENCY : ONCE;
     Route: 042
     Dates: start: 20250930, end: 20250930
  2. VINCRISTINE [Concomitant]
     Active Substance: VINCRISTINE
     Dates: start: 20250930, end: 20250930

REACTIONS (1)
  - Pancreatitis [None]

NARRATIVE: CASE EVENT DATE: 20251118
